FAERS Safety Report 7759440-5 (Version None)
Quarter: 2011Q3

REPORT INFORMATION
  Report Type: 
  Country: None (occurrence: None)
  Receive Date: 20110915
  Receipt Date: 20110905
  Transmission Date: 20111222
  Serious: Yes (Death, Life-Threatening)
  Sender: FDA-Public Use
  Company Number: 1000023441

PATIENT
  Age: 94 Year
  Sex: Male

DRUGS (6)
  1. ARICEPT [Suspect]
     Indication: DEMENTIA ALZHEIMER'S TYPE
     Dosage: 5 MG (5 MG, 1 IN 1 D), ORAL
     Route: 048
     Dates: start: 20110629, end: 20110801
  2. ALLEGRA (FEXOFENADINE HYDROCHLORIDE) (FEXOFENADINE HYDROCHLORIDE) [Concomitant]
  3. RISPERDAL [Suspect]
     Indication: SCHIZOPHRENIA
     Dosage: 0.5 MG (0.5 MG, 1 IN 1 D), ORAL
     Route: 048
     Dates: start: 20110727, end: 20110801
  4. AMANTADINE (AMANTADINE HYDROCHLORIDE) (AMANTADINE HYDROCHLORIDE) [Concomitant]
  5. MEMANTINE [Suspect]
     Indication: DEMENTIA ALZHEIMER'S TYPE
     Dosage: 20 MG (20 MG, 1 IN 1 D), ORAL
     Dates: start: 20110720, end: 20110801
  6. NICERGOLINE (NICERGOLINE) (NICERGOLINE) [Concomitant]

REACTIONS (10)
  - PYREXIA [None]
  - JAUNDICE CHOLESTATIC [None]
  - CARDIAC FAILURE CHRONIC [None]
  - BLOOD CHOLESTEROL DECREASED [None]
  - BLOOD POTASSIUM INCREASED [None]
  - BLOOD CREATINE PHOSPHOKINASE DECREASED [None]
  - BLOOD SODIUM DECREASED [None]
  - HAEMATOCRIT DECREASED [None]
  - BLOOD CHLORIDE DECREASED [None]
  - HAEMOGLOBIN DECREASED [None]
